FAERS Safety Report 8667081 (Version 2)
Quarter: 2012Q4

REPORT INFORMATION
  Report Type: 
  Country: US (occurrence: US)
  Receive Date: 20120717
  Receipt Date: 20121114
  Transmission Date: 20130627
  Serious: Yes (Hospitalization)
  Sender: FDA-Public Use
  Company Number: US-BIOGENIDEC-2012BI024488

PATIENT
  Age: 64 None
  Sex: Female

DRUGS (2)
  1. AVONEX [Suspect]
     Indication: MULTIPLE SCLEROSIS
     Route: 030
     Dates: start: 20050805
  2. AVONEX [Suspect]
     Indication: MULTIPLE SCLEROSIS
     Route: 030
     Dates: start: 20120629

REACTIONS (3)
  - Neuralgia [Not Recovered/Not Resolved]
  - Oedema peripheral [Recovered/Resolved]
  - Multiple sclerosis relapse [Recovered/Resolved]
